FAERS Safety Report 6448836-X (Version None)
Quarter: 2009Q4

REPORT INFORMATION
  Report Type: 
  Country: None (occurrence: None)
  Receive Date: 20091119
  Receipt Date: 20091119
  Transmission Date: 20100525
  Serious: No
  Sender: FDA-Public Use
  Company Number: None

PATIENT
  Age: 55 Year
  Sex: Female
  Weight: 49.8957 kg

DRUGS (2)
  1. GABAPENTIN [Suspect]
     Indication: DEPRESSION
     Dosage: 300 MG HS PO
     Route: 048
     Dates: start: 20091021, end: 20091022
  2. GABAPENTIN [Suspect]
     Indication: DEPRESSION
     Dosage: 100 MG BID PO
     Route: 048
     Dates: start: 20091021, end: 20091022

REACTIONS (1)
  - DIZZINESS [None]
